FAERS Safety Report 14250008 (Version 1)
Quarter: 2017Q4

REPORT INFORMATION
  Report Type: Spontaneous
  Country: AR (occurrence: AR)
  Receive Date: 20171205
  Receipt Date: 20171205
  Transmission Date: 20180321
  Serious: Yes (Death, Hospitalization, Other)
  Sender: FDA-Public Use
  Company Number: AR-AMGEN-ARGSP2017040924

PATIENT
  Age: 70 Year
  Sex: Female

DRUGS (1)
  1. ENBREL [Suspect]
     Active Substance: ETANERCEPT
     Indication: RHEUMATOID ARTHRITIS
     Dosage: 50 MG, WEEKLY
     Route: 065
     Dates: start: 20161012

REACTIONS (7)
  - Respiratory failure [Unknown]
  - Haemorrhage [Unknown]
  - Genital infection female [Unknown]
  - Pneumonia [Not Recovered/Not Resolved]
  - Decreased immune responsiveness [Unknown]
  - Death [Fatal]
  - Arthritis infective [Not Recovered/Not Resolved]

NARRATIVE: CASE EVENT DATE: 201702
